FAERS Safety Report 5488517-2 (Version None)
Quarter: 2007Q4

REPORT INFORMATION
  Report Type: 
  Country: None (occurrence: None)
  Receive Date: 20071017
  Receipt Date: 20071005
  Transmission Date: 20080405
  Serious: Yes (Hospitalization, Other)
  Sender: FDA-Public Use
  Company Number: ES-ELI_LILLY_AND_COMPANY-ES200710001791

PATIENT
  Age: 27 Year
  Sex: Male

DRUGS (1)
  1. PROZAC [Suspect]
     Indication: DEPRESSION
     Dosage: UNK, UNKNOWN
     Route: 065
     Dates: start: 20010101

REACTIONS (13)
  - DISORIENTATION [None]
  - DRUG INTERACTION [None]
  - HYPERHIDROSIS [None]
  - HYPERREFLEXIA [None]
  - HYPERTENSION [None]
  - MYOCLONUS [None]
  - PSYCHOMOTOR HYPERACTIVITY [None]
  - PYREXIA [None]
  - RESPIRATORY RATE INCREASED [None]
  - RESPIRATORY TRACT INFECTION [None]
  - SALIVARY HYPERSECRETION [None]
  - SEROTONIN SYNDROME [None]
  - TACHYCARDIA [None]
